FAERS Safety Report 8130258-7 (Version None)
Quarter: 2012Q1

REPORT INFORMATION
  Report Type: 
  Country: None (occurrence: None)
  Receive Date: 20120210
  Receipt Date: 20120203
  Transmission Date: 20120608
  Serious: Yes (Other)
  Sender: FDA-Public Use
  Company Number: PHEH2011US011111

PATIENT
  Sex: Female

DRUGS (4)
  1. AMANTADINE HCL [Concomitant]
     Dosage: 100 MG, BID
  2. VITAMIN D [Concomitant]
     Indication: MULTIPLE SCLEROSIS
     Dosage: 3000 IU, PER DAY
     Route: 048
  3. GILENYA [Suspect]
     Indication: MULTIPLE SCLEROSIS
     Dosage: 0.5 MG, QD
     Route: 048
     Dates: start: 20110901, end: 20111110
  4. NAPROXEN [Concomitant]
     Dosage: 500 MG, DAILY

REACTIONS (4)
  - CORNEAL EPITHELIUM DEFECT [None]
  - BLINDNESS [None]
  - CORNEAL DISORDER [None]
  - VISION BLURRED [None]
